FAERS Safety Report 8948945 (Version 1)
Quarter: 2012Q4

REPORT INFORMATION
  Report Type: 
  Country: US (occurrence: US)
  Receive Date: 20121206
  Receipt Date: 20121206
  Transmission Date: 20130627
  Serious: No
  Sender: FDA-Public Use
  Company Number: US-BIOGENIDEC-2012BI057242

PATIENT
  Sex: Female

DRUGS (1)
  1. AVONEX [Suspect]
     Indication: MULTIPLE SCLEROSIS
     Route: 030
     Dates: start: 20100805, end: 20101014

REACTIONS (4)
  - Skin reaction [Unknown]
  - Nervousness [Unknown]
  - Adverse drug reaction [Unknown]
  - Hypersensitivity [Unknown]
